FAERS Safety Report 23431153 (Version 1)
Quarter: 2024Q1

REPORT INFORMATION
  Report Type: Spontaneous
  Country: US (occurrence: US)
  Receive Date: 20240123
  Receipt Date: 20240123
  Transmission Date: 20240410
  Serious: No
  Sender: FDA-Public Use
  Company Number: US-SA-SAC20240116000112

PATIENT
  Age: 58 Year
  Sex: Male

DRUGS (1)
  1. DUPIXENT [Suspect]
     Active Substance: DUPILUMAB
     Dosage: UNKNOWN

REACTIONS (3)
  - Nasal congestion [Unknown]
  - Ear infection [Unknown]
  - Ear discomfort [Unknown]

NARRATIVE: CASE EVENT DATE: 20230101
